FAERS Safety Report 19403578 (Version 1)
Quarter: 2021Q2

REPORT INFORMATION
  Report Type: Spontaneous
  Country: DK (occurrence: DK)
  Receive Date: 20210610
  Receipt Date: 20210610
  Transmission Date: 20210717
  Serious: Yes (Hospitalization)
  Sender: FDA-Public Use
  Company Number: DK-AMGEN-DNKSP2021088399

PATIENT
  Age: 55 Year
  Sex: Female
  Weight: 58 kg

DRUGS (5)
  1. BRUFEN RETARD [Concomitant]
     Active Substance: IBUPROFEN
     Indication: PAIN
     Dosage: UNK
     Dates: start: 20200709
  2. PANTOLOC [Concomitant]
     Active Substance: PANTOPRAZOLE SODIUM
     Indication: GASTROOESOPHAGEAL REFLUX DISEASE
     Dosage: UNK
     Dates: start: 20200709
  3. PANODIL [Concomitant]
     Active Substance: ACETAMINOPHEN
     Indication: PAIN
     Dosage: UNK
     Dates: start: 20200506
  4. AMGEVITA [Suspect]
     Active Substance: ADALIMUMAB
     Indication: RHEUMATOID ARTHRITIS
     Dosage: 40 MILLIGRAM (STRENGTH: 40 MILLIGRAM)
     Route: 058
     Dates: start: 20210323, end: 20210323
  5. GABAMED [GABAPENTIN] [Concomitant]
     Indication: PAIN
     Dosage: UNK
     Dates: start: 20200805

REACTIONS (3)
  - Rash macular [Unknown]
  - Lip swelling [Unknown]
  - Rash maculo-papular [Unknown]

NARRATIVE: CASE EVENT DATE: 20210402
